FAERS Safety Report 23479980 (Version 1)
Quarter: 2024Q1

REPORT INFORMATION
  Report Type: Spontaneous
  Country: US (occurrence: US)
  Receive Date: 20240205
  Receipt Date: 20240205
  Transmission Date: 20240410
  Serious: Yes (Other)
  Sender: FDA-Public Use
  Company Number: US-UCBSA-2023052412

PATIENT

DRUGS (1)
  1. KEPPRA [Suspect]
     Active Substance: LEVETIRACETAM
     Indication: Product used for unknown indication
     Dosage: 50 MILLIGRAM

REACTIONS (4)
  - Suicidal ideation [Recovered/Resolved]
  - Feeling abnormal [Recovered/Resolved]
  - Therapy change [Unknown]
  - Underdose [Unknown]
